FAERS Safety Report 8933247 (Version 3)
Quarter: 2013Q2

REPORT INFORMATION
  Report Type: Report from Study
  Country: JP (occurrence: JP)
  Receive Date: 20121128
  Receipt Date: 20130605
  Transmission Date: 20140414
  Serious: Yes (Other)
  Sender: FDA-Public Use
  Company Number: JP-VERTEX PHARMACEUTICAL INC.-2012-025129

PATIENT
  Age: 65 Year
  Sex: Female

DRUGS (27)
  1. VX-950 (TELAPREVIR) [Suspect]
     Indication: CHRONIC HEPATITIS C
     Dosage: 1500 MG, QD
     Route: 048
     Dates: start: 20120816, end: 20120918
  2. VX-950 (TELAPREVIR) [Suspect]
     Dosage: 1250 MG, QD
     Route: 048
     Dates: start: 20120919, end: 20120925
  3. VX-950 (TELAPREVIR) [Suspect]
     Dosage: 1000 MG, QD
     Route: 048
     Dates: start: 20120926, end: 20121002
  4. VX-950 (TELAPREVIR) [Suspect]
     Dosage: 1250 MG, QD
     Route: 048
     Dates: start: 20121003, end: 20121107
  5. REBETOL [Suspect]
     Indication: CHRONIC HEPATITIS C
     Dosage: 400 MG, QD
     Route: 048
     Dates: start: 20120816, end: 20120828
  6. REBETOL [Suspect]
     Dosage: 400 MG ON EVEN DAYS, 600 MG ON ODD DAYS
     Route: 048
     Dates: start: 20120829, end: 20120904
  7. REBETOL [Suspect]
     Dosage: 400 MG ON EVEN DAYS, 200 MG ON ODD DAYS
     Route: 048
     Dates: start: 20120905, end: 20121002
  8. REBETOL [Suspect]
     Dosage: 200 MG, QD
     Route: 048
     Dates: start: 20121003, end: 20121023
  9. REBETOL [Suspect]
     Dosage: 200 MG, QOD
     Route: 048
     Dates: start: 20121024, end: 20121127
  10. REBETOL [Suspect]
     Dosage: 200 MG, QD
     Route: 048
     Dates: start: 20121128, end: 20121211
  11. REBETOL [Suspect]
     Dosage: 200 MG ON ODD DAYS, 400 MG ON EVEN DAYS
     Route: 048
     Dates: start: 20121212, end: 20121218
  12. REBETOL [Suspect]
     Dosage: 400 MG, QD
     Route: 048
     Dates: start: 20121219, end: 20130115
  13. REBETOL [Suspect]
     Dosage: 600 MG, QD
     Route: 048
     Dates: start: 20130116, end: 20130205
  14. PEGINTRON [Suspect]
     Indication: CHRONIC HEPATITIS C
     Dosage: 1.0 ?G/KG,QW
     Route: 058
     Dates: start: 20120816, end: 20120821
  15. PEGINTRON [Suspect]
     Dosage: 1.1 ?G/KG, QW
     Route: 058
     Dates: start: 20120822, end: 20120828
  16. PEGINTRON [Suspect]
     Dosage: 1.3 ?G/KG, QW
     Route: 058
     Dates: start: 20120829, end: 20120904
  17. PEGINTRON [Suspect]
     Dosage: 0.7 ?G/KG, QW
     Route: 058
     Dates: start: 20120905, end: 20120911
  18. PEGINTRON [Suspect]
     Dosage: 0.9 ?G/KG, QW
     Route: 058
     Dates: start: 20120912, end: 20120918
  19. PEGINTRON [Suspect]
     Dosage: 1.1 ?G/KG, QW
     Route: 058
     Dates: start: 20120919, end: 20121009
  20. PEGINTRON [Suspect]
     Dosage: 1.3 ?G/KG, QW
     Route: 058
     Dates: start: 20121010, end: 20121016
  21. PEGINTRON [Suspect]
     Dosage: 1.4 ?G/KG, QW
     Route: 058
     Dates: start: 20121017, end: 20121127
  22. PEGINTRON [Suspect]
     Dosage: 1.4 ?G/KG, QW
     Route: 058
     Dates: start: 20121205, end: 20130101
  23. PEGINTRON [Suspect]
     Dosage: 1.3 ?G/KG, QW
     Route: 058
     Dates: start: 20130102, end: 20130122
  24. PEGINTRON [Suspect]
     Dosage: 1.4 ?G/KG, QW
     Route: 058
     Dates: start: 20130123, end: 20130130
  25. URSO [Concomitant]
     Dosage: 600 MG, QD
     Route: 048
  26. BLOPRESS [Concomitant]
     Dosage: 8 MG, QD
     Route: 048
  27. ALLELOCK [Concomitant]
     Dosage: 10 MG, QD
     Route: 048

REACTIONS (1)
  - Retinopathy [Recovered/Resolved]
